FAERS Safety Report 17622531 (Version 1)
Quarter: 2020Q2

REPORT INFORMATION
  Report Type: Spontaneous
  Country: IT (occurrence: IT)
  Receive Date: 20200403
  Receipt Date: 20200403
  Transmission Date: 20200713
  Serious: Yes (Hospitalization, Other)
  Sender: FDA-Public Use
  Company Number: IT-PFIZER INC-2019555976

PATIENT
  Age: 69 Year
  Sex: Female

DRUGS (1)
  1. TRIATEC (RAMIPRIL) [Suspect]
     Active Substance: RAMIPRIL
     Indication: HYPERTENSION
     Dosage: 5 MG, DAILY
     Route: 048
     Dates: start: 20181025, end: 20181027

REACTIONS (2)
  - Hypertensive crisis [Recovering/Resolving]
  - Therapeutic product ineffective [Unknown]

NARRATIVE: CASE EVENT DATE: 20181027
